FAERS Safety Report 10214336 (Version 1)
Quarter: 2014Q2

REPORT INFORMATION
  Report Type: Spontaneous
  Country: US (occurrence: US)
  Receive Date: 20140603
  Receipt Date: 20140603
  Transmission Date: 20141212
  Serious: Yes (Hospitalization)
  Sender: FDA-Public Use
  Company Number: US-B.I. PHARMACEUTICALS,INC./RIDGEFIELD-2014-BI-24308BP

PATIENT
  Age: 66 Year
  Sex: Male

DRUGS (9)
  1. PRADAXA [Suspect]
     Indication: ATRIAL FIBRILLATION
     Dosage: 300 MG
     Route: 048
     Dates: start: 2012, end: 201404
  2. JANUMET [Concomitant]
     Indication: DIABETES MELLITUS
     Dosage: 25 MG
     Route: 048
  3. PANTOPRAZOLE [Concomitant]
     Dosage: 40 MG
     Route: 048
  4. LASIX [Concomitant]
     Dosage: 40 MG
     Route: 048
  5. AMLODIPINE [Concomitant]
     Route: 048
  6. LIPITOR [Concomitant]
     Indication: BLOOD CHOLESTEROL INCREASED
     Dosage: 20 MG
     Route: 048
  7. TRICOR [Concomitant]
     Indication: BLOOD CHOLESTEROL INCREASED
     Dosage: 145 MG
     Route: 048
  8. ASPIRIN [Concomitant]
     Dosage: 81 MG
     Route: 048
  9. METOPROLOL [Concomitant]
     Dosage: 50 MG
     Route: 048

REACTIONS (1)
  - Gastric haemorrhage [Recovered/Resolved]
